FAERS Safety Report 8432859 (Version 2)
Quarter: 2013Q1

REPORT INFORMATION
  Report Type: Spontaneous
  Country: US (occurrence: US)
  Receive Date: 20120229
  Receipt Date: 20130205
  Transmission Date: 20140127
  Serious: Yes (Hospitalization, Other)
  Sender: FDA-Public Use
  Company Number: US-ELI_LILLY_AND_COMPANY-US201112004301

PATIENT
  Age: 58 None
  Sex: Female

DRUGS (24)
  1. FORTEO [Suspect]
     Indication: OSTEOPOROSIS
     Dosage: 20 UG, QD
     Route: 065
     Dates: start: 201108
  2. FORTEO [Suspect]
     Dosage: 20 UG, QD
  3. FORTEO [Suspect]
     Dosage: UNK
  4. CITALOPRAM [Concomitant]
  5. CHLORAZEPAM [Concomitant]
  6. DDAVP [Concomitant]
  7. FENTANYL [Concomitant]
     Dosage: UNK, TID
  8. LAMICTAL [Concomitant]
  9. LOVAZA [Concomitant]
  10. LIDODERM [Concomitant]
  11. LYRICA [Concomitant]
  12. METOPROLOL [Concomitant]
  13. PANCRELIPASE [Concomitant]
  14. PLAQUENIL [Concomitant]
  15. POTASSIUM CHLORIDE [Concomitant]
  16. TRAVATAN [Concomitant]
  17. ADVAIR DISKUS [Concomitant]
  18. ALBUTEROL [Concomitant]
  19. CLARITIN [Concomitant]
  20. DICLOFENAC EPOLAMINE [Concomitant]
  21. OXYCODONE [Concomitant]
  22. PROMETHAZINE [Concomitant]
  23. SENOKOT [Concomitant]
  24. TYLENOL                                 /SCH/ [Concomitant]

REACTIONS (6)
  - Clostridium difficile infection [Unknown]
  - Dislocation of vertebra [Unknown]
  - Road traffic accident [Unknown]
  - Fall [Unknown]
  - Foot fracture [Unknown]
  - Back pain [Unknown]
